FAERS Safety Report 4368171-3 (Version None)
Quarter: 2004Q2

REPORT INFORMATION
  Report Type: 
  Country: None (occurrence: None)
  Receive Date: 20040602
  Receipt Date: 20031216
  Transmission Date: 20050107
  Serious: No
  Sender: FDA-Public Use
  Company Number: US-GLAXOSMITHKLINE-A0444047A

PATIENT
  Age: 9 Month
  Sex: Female
  Weight: 9.1 kg

DRUGS (1)
  1. AUGMENTIN [Suspect]
     Indication: OTITIS MEDIA
     Route: 048
     Dates: start: 20030101, end: 20030101

REACTIONS (1)
  - URTICARIA [None]
